FAERS Safety Report 7739597-2 (Version None)
Quarter: 2011Q3

REPORT INFORMATION
  Report Type: 
  Country: None (occurrence: None)
  Receive Date: 20110909
  Receipt Date: 20110906
  Transmission Date: 20111222
  Serious: Yes (Other)
  Sender: FDA-Public Use
  Company Number: CN-PFIZER INC-2011207241

PATIENT
  Age: 36 Year
  Sex: Male

DRUGS (1)
  1. ZOLOFT [Suspect]
     Indication: DEPRESSION
     Dosage: 100MG, TWICE DAILY
     Route: 048
     Dates: start: 20090101

REACTIONS (5)
  - MOROSE [None]
  - SUICIDAL IDEATION [None]
  - HOMICIDAL IDEATION [None]
  - DYSPHORIA [None]
  - EMOTIONAL DISTRESS [None]
